FAERS Safety Report 8407308-3 (Version None)
Quarter: 2012Q2

REPORT INFORMATION
  Report Type: 
  Country: None (occurrence: None)
  Receive Date: 20120604
  Receipt Date: 20120521
  Transmission Date: 20120825
  Serious: Yes (Other)
  Sender: FDA-Public Use
  Company Number: FR-PFIZER INC-A02200602490

PATIENT
  Age: 48 Year
  Sex: Female

DRUGS (2)
  1. CISPLATIN [Suspect]
     Indication: GASTRIC CANCER STAGE II
     Dosage: 100 MG/M2, OTHER
     Route: 042
  2. FLUOROURACIL [Suspect]
     Indication: GASTRIC CANCER STAGE II
     Dosage: 100 MG/M2, OTHER
     Route: 042

REACTIONS (1)
  - HEPATIC LESION [None]
